FAERS Safety Report 15300923 (Version 3)
Quarter: 2018Q4

REPORT INFORMATION
  Report Type: Not Available
  Country: US (occurrence: US)
  Receive Date: 20180821
  Receipt Date: 20181019
  Transmission Date: 20190204
  Serious: No
  Sender: FDA-Public Use
  Company Number: US-NEUROCRINE BIOSCIENCES INC.-2018NBI02366

PATIENT
  Sex: Female
  Weight: 75.55 kg

DRUGS (24)
  1. HYDROXYZINE HYDROCHLORIDE. [Concomitant]
     Active Substance: HYDROXYZINE HYDROCHLORIDE
     Dosage: AS NEEDED (PRN)
     Route: 048
  2. VESICARE [Concomitant]
     Active Substance: SOLIFENACIN SUCCINATE
     Route: 048
  3. ZAFIRLUKAST. [Concomitant]
     Active Substance: ZAFIRLUKAST
     Dosage: 1 TABLET TWICE DAILY
     Route: 048
  4. ALPRAZOLAM. [Concomitant]
     Active Substance: ALPRAZOLAM
     Dosage: AS NEEDED FOR 30 DAYS
     Route: 048
  5. INGREZZA [Suspect]
     Active Substance: VALBENAZINE
     Route: 048
     Dates: start: 20180426, end: 20180724
  6. IBUPROFEN. [Concomitant]
     Active Substance: IBUPROFEN
  7. TOPIRAMATE. [Concomitant]
     Active Substance: TOPIRAMATE
     Dosage: AS DIRECTED FOR 30 DAYS
     Route: 048
  8. INGREZZA [Suspect]
     Active Substance: VALBENAZINE
     Indication: TARDIVE DYSKINESIA
     Route: 048
     Dates: start: 20180419, end: 20180425
  9. LEVOTHYROXINE SODIUM. [Concomitant]
     Active Substance: LEVOTHYROXINE SODIUM
     Route: 048
  10. OXYBUTYNIN CHLORIDE. [Concomitant]
     Active Substance: OXYBUTYNIN CHLORIDE
     Dosage: 5 MG TABLET; ER 10 MG TB24
  11. BENZTROPINE. [Concomitant]
     Active Substance: BENZTROPINE
     Dosage: AS DIRECTED FOR 30 DAYS
     Route: 048
  12. EZETIMIBE. [Concomitant]
     Active Substance: EZETIMIBE
     Route: 048
  13. PAROXETINE. [Concomitant]
     Active Substance: PAROXETINE
     Dosage: AS DIRECTED FOR 30 DAYS
     Route: 048
  14. RIVASTIGMINE. [Concomitant]
     Active Substance: RIVASTIGMINE
     Dosage: 4.6 MG/24 HR, APPLY 1 PATCH DAILY AS DIRECTED
  15. ROPINIROLE. [Concomitant]
     Active Substance: ROPINIROLE
  16. SIMVASTATIN. [Concomitant]
     Active Substance: SIMVASTATIN
  17. FLUDROCORTISONE [Concomitant]
     Active Substance: FLUDROCORTISONE
  18. PAROXETINE. [Concomitant]
     Active Substance: PAROXETINE
     Dosage: AS DIRECTED FOR 30 DAYS
     Route: 048
  19. SIMVASTATIN. [Concomitant]
     Active Substance: SIMVASTATIN
     Route: 048
  20. FANAPT [Suspect]
     Active Substance: ILOPERIDONE
     Indication: PRODUCT USED FOR UNKNOWN INDICATION
     Dosage: AS DIRECTED FOR 30 DAYS
     Route: 048
  21. COMBIVENT RESPIMAT [Concomitant]
     Active Substance: ALBUTEROL SULFATE\IPRATROPIUM BROMIDE
     Dosage: 20-MCG/100 MCG/ACTUATION SOLUTION FOR INHALATION
  22. DIPHENHYDRAMINE. [Concomitant]
     Active Substance: DIPHENHYDRAMINE
     Dosage: AS DIRECTED FOR 30 DAYS
     Route: 048
  23. FAMOTIDINE. [Concomitant]
     Active Substance: FAMOTIDINE
  24. ZOLPIDEM [Concomitant]
     Active Substance: ZOLPIDEM\ZOLPIDEM TARTRATE
     Dosage: AS NEEDED AT BED TIME FOR 30 DAYS
     Route: 048

REACTIONS (23)
  - Dyspnoea [Unknown]
  - Disturbance in attention [Unknown]
  - Visual impairment [Unknown]
  - Fatigue [Unknown]
  - Vomiting [Unknown]
  - Blood pressure decreased [Unknown]
  - Muscular weakness [Unknown]
  - Chills [Unknown]
  - Emotional distress [Unknown]
  - Drug effect decreased [None]
  - Back pain [Unknown]
  - Tinnitus [Unknown]
  - Dizziness [Unknown]
  - Insomnia [Unknown]
  - Nausea [Unknown]
  - Fall [Unknown]
  - Hypertension [Unknown]
  - Dysphonia [Unknown]
  - Dysphagia [Unknown]
  - Seasonal allergy [Unknown]
  - Oropharyngeal pain [Unknown]
  - Weight decreased [Unknown]
  - Pruritus [Unknown]
